FAERS Safety Report 19213621 (Version 1)
Quarter: 2021Q2

REPORT INFORMATION
  Report Type: Spontaneous
  Country: CA (occurrence: CA)
  Receive Date: 20210505
  Receipt Date: 20210505
  Transmission Date: 20210717
  Serious: Yes (Hospitalization, Other)
  Sender: FDA-Public Use
  Company Number: CA-ASTRAZENECA-2021A365696

PATIENT
  Age: 52 Year
  Sex: Female

DRUGS (10)
  1. TEVA?DULOXETINE [Suspect]
     Active Substance: DULOXETINE
     Indication: PRODUCT USED FOR UNKNOWN INDICATION
     Route: 065
  2. TEVA?DULOXETINE [Suspect]
     Active Substance: DULOXETINE
     Indication: PRODUCT USED FOR UNKNOWN INDICATION
     Route: 065
  3. TEVA?XYLOMETAZOLINE [Suspect]
     Active Substance: XYLOMETAZOLINE HYDROCHLORIDE
     Indication: PRODUCT USED FOR UNKNOWN INDICATION
     Route: 065
  4. TEVA?DULOXETINE [Suspect]
     Active Substance: DULOXETINE
     Indication: SCIATICA
     Route: 065
  5. TEVA?XYLOMETAZOLINE [Suspect]
     Active Substance: XYLOMETAZOLINE HYDROCHLORIDE
     Indication: NASAL CONGESTION
     Dosage: DAILY
     Route: 065
  6. SALBUTAMOL SULFATE [Concomitant]
     Active Substance: ALBUTEROL SULFATE
     Indication: ASTHMA
     Route: 065
  7. TEVA?XYLOMETAZOLINE [Suspect]
     Active Substance: XYLOMETAZOLINE HYDROCHLORIDE
     Indication: NASAL CONGESTION
     Route: 065
  8. TEVA?XYLOMETAZOLINE [Suspect]
     Active Substance: XYLOMETAZOLINE HYDROCHLORIDE
     Indication: PRODUCT USED FOR UNKNOWN INDICATION
     Dosage: DAILY
     Route: 065
  9. BUDESONIDE+FORMOTEROL FUMARATE [Suspect]
     Active Substance: BUDESONIDE\FORMOTEROL FUMARATE
     Indication: ASTHMA
     Route: 055
  10. TEVA?DULOXETINE [Suspect]
     Active Substance: DULOXETINE
     Indication: SCIATICA
     Route: 065

REACTIONS (10)
  - Headache [Recovered/Resolved]
  - Reversible cerebral vasoconstriction syndrome [Recovered/Resolved]
  - Rhinorrhoea [Recovered/Resolved]
  - Nasal mucosal disorder [Recovered/Resolved]
  - Rebound nasal congestion [Recovered/Resolved]
  - Drug interaction [Recovered/Resolved]
  - Nasal turbinate hypertrophy [Recovered/Resolved]
  - Subarachnoid haemorrhage [Recovered/Resolved]
  - Hypertension [Recovered/Resolved]
  - Cerebral artery stenosis [Recovered/Resolved]
